FAERS Safety Report 4341577-4 (Version None)
Quarter: 2004Q2

REPORT INFORMATION
  Report Type: 
  Country: None (occurrence: None)
  Receive Date: 20040419
  Receipt Date: 20040419
  Transmission Date: 20050107
  Serious: Yes (Life-Threatening, Hospitalization)
  Sender: FDA-Public Use
  Company Number: None

PATIENT
  Sex: Female
  Weight: 70.3075 kg

DRUGS (1)
  1. EFFEXOR [Suspect]
     Dosage: 1 PER DAY
     Dates: start: 20040110, end: 20040319

REACTIONS (2)
  - DEPRESSION [None]
  - SUICIDAL IDEATION [None]
